FAERS Safety Report 11135427 (Version 1)
Quarter: 2015Q2

REPORT INFORMATION
  Report Type: Spontaneous
  Country: CN (occurrence: None)
  Receive Date: 20150521
  Receipt Date: 20150521
  Transmission Date: 20150821
  Serious: Yes (Hospitalization)
  Sender: FDA-Public Use
  Company Number: 2015AMD00065

PATIENT
  Age: 28 Year
  Sex: Male

DRUGS (1)
  1. ZENTEL (ALBENDAZOLE) TABLET [Suspect]
     Active Substance: ALBENDAZOLE
     Indication: HELMINTHIC INFECTION
     Route: 048
     Dates: start: 20150425, end: 20150425

REACTIONS (1)
  - Somatoform disorder cardiovascular [None]

NARRATIVE: CASE EVENT DATE: 20150426
